FAERS Safety Report 20999376 (Version 4)
Quarter: 2022Q3

REPORT INFORMATION
  Report Type: Report from Study
  Country: US (occurrence: US)
  Receive Date: 20220623
  Receipt Date: 20220913
  Transmission Date: 20221027
  Serious: No
  Sender: FDA-Public Use
  Company Number: US-NOVARTISTESTPH-NVSC2022US143522

PATIENT
  Sex: Female

DRUGS (1)
  1. FILGRASTIM [Suspect]
     Active Substance: FILGRASTIM
     Indication: Product used for unknown indication
     Dosage: 0.5 ML (ONCE DAILY FOR FIVE DAYS AFTER CHEMO)
     Route: 058
     Dates: start: 20201110, end: 20201223

REACTIONS (2)
  - Bone pain [Unknown]
  - White blood cell count decreased [Unknown]
